FAERS Safety Report 8609694-8 (Version None)
Quarter: 2012Q3

REPORT INFORMATION
  Report Type: 
  Country: None (occurrence: None)
  Receive Date: 20120821
  Receipt Date: 20120815
  Transmission Date: 20120928
  Serious: Yes (Hospitalization)
  Sender: FDA-Public Use
  Company Number: AU-JNJFOC-20120705043

PATIENT
  Sex: Female

DRUGS (3)
  1. STELARA [Suspect]
     Indication: PRODUCT USED FOR UNKNOWN INDICATION
     Route: 058
     Dates: start: 20120428
  2. MIXTARD HUMAN 70/30 [Concomitant]
  3. STELARA [Suspect]
     Route: 058
     Dates: start: 20120331

REACTIONS (7)
  - PERITONITIS BACTERIAL [None]
  - LIVER DISORDER [None]
  - VITAMIN D DEFICIENCY [None]
  - HEPATIC ENCEPHALOPATHY [None]
  - OEDEMA PERIPHERAL [None]
  - METABOLIC DISORDER [None]
  - FATIGUE [None]
